FAERS Safety Report 6930217-3 (Version None)
Quarter: 2010Q3

REPORT INFORMATION
  Report Type: 
  Country: None (occurrence: None)
  Receive Date: 20100813
  Receipt Date: 20100729
  Transmission Date: 20110219
  Serious: Yes (Hospitalization)
  Sender: FDA-Public Use
  Company Number: 7010975

PATIENT
  Age: 38 Year
  Sex: Female

DRUGS (2)
  1. REBIF [Suspect]
     Indication: MULTIPLE SCLEROSIS
     Dosage: 44 MCG, 3 IN 1 WK, SUBCUTANEOUS
     Route: 058
     Dates: start: 20090601
  2. ACETAMINOPHEN [Concomitant]

REACTIONS (6)
  - DEPRESSION [None]
  - FATIGUE [None]
  - HEAT ILLNESS [None]
  - HYPOPHAGIA [None]
  - MALAISE [None]
  - PRESYNCOPE [None]
